FAERS Safety Report 15037680 (Version 1)
Quarter: 2018Q2

REPORT INFORMATION
  Report Type: Report from Study
  Country: DE (occurrence: DE)
  Receive Date: 20180620
  Receipt Date: 20180620
  Transmission Date: 20180711
  Serious: Yes (Hospitalization, Other)
  Sender: FDA-Public Use
  Company Number: DE-ELI_LILLY_AND_COMPANY-DE201806003577

PATIENT
  Age: 57 Year
  Sex: Female
  Weight: 86 kg

DRUGS (12)
  1. CARBOPLATIN. [Suspect]
     Active Substance: CARBOPLATIN
     Dosage: 650 MG, UNKNOWN
     Route: 042
     Dates: start: 20140113
  2. CARBOPLATIN. [Suspect]
     Active Substance: CARBOPLATIN
     Indication: NON-SMALL CELL LUNG CANCER
     Dosage: 650 MG, UNKNOWN
     Route: 042
     Dates: start: 20131129, end: 20131129
  3. CARBOPLATIN. [Suspect]
     Active Substance: CARBOPLATIN
     Dosage: 650 MG, UNKNOWN
     Route: 042
     Dates: start: 20131229
  4. AVASTIN                            /00848101/ [Suspect]
     Active Substance: SIMVASTATIN
     Indication: NON-SMALL CELL LUNG CANCER
     Dosage: 650 MG, CYCLICAL
     Route: 042
     Dates: start: 20131129
  5. PEMETREXED. [Suspect]
     Active Substance: PEMETREXED
     Dosage: 1000 MG, UNKNOWN
     Route: 042
     Dates: start: 20140113
  6. CARBOPLATIN. [Suspect]
     Active Substance: CARBOPLATIN
     Dosage: 650 MG, UNKNOWN
     Route: 042
     Dates: start: 20131220
  7. AVASTIN                            /00848101/ [Suspect]
     Active Substance: SIMVASTATIN
     Dosage: 650 MG, UNKNOWN
     Route: 042
     Dates: start: 20131229
  8. AVASTIN                            /00848101/ [Suspect]
     Active Substance: SIMVASTATIN
     Dosage: 650 MG, UNKNOWN
     Route: 042
     Dates: start: 20140113
  9. AVASTIN                            /00848101/ [Suspect]
     Active Substance: SIMVASTATIN
     Dosage: 650 MG, UNKNOWN
     Route: 042
     Dates: start: 20131220
  10. PEMETREXED. [Suspect]
     Active Substance: PEMETREXED
     Indication: NON-SMALL CELL LUNG CANCER
     Dosage: 1000 MG, UNKNOWN
     Route: 042
     Dates: start: 20131129, end: 20131129
  11. PEMETREXED. [Suspect]
     Active Substance: PEMETREXED
     Dosage: 1000 MG, UNKNOWN
     Route: 042
     Dates: start: 20131220
  12. PEMETREXED. [Suspect]
     Active Substance: PEMETREXED
     Dosage: 1000 MG, UNKNOWN
     Route: 042
     Dates: start: 20131229

REACTIONS (11)
  - Fatigue [Recovered/Resolved]
  - Melanocytic naevus [Unknown]
  - Conjunctivitis [Recovered/Resolved]
  - Performance status decreased [Recovered/Resolved]
  - Nausea [Recovered/Resolved]
  - Vomiting [Recovered/Resolved]
  - Malignant pleural effusion [Recovered/Resolved]
  - Paraesthesia [Recovered/Resolved]
  - Hypertension [Recovered/Resolved]
  - Decreased appetite [Recovered/Resolved]
  - Chest pain [Recovered/Resolved]

NARRATIVE: CASE EVENT DATE: 20131129
